FAERS Safety Report 8238072-9 (Version None)
Quarter: 2012Q1

REPORT INFORMATION
  Report Type: 
  Country: None (occurrence: None)
  Receive Date: 20120327
  Receipt Date: 20120320
  Transmission Date: 20120608
  Serious: Yes (Hospitalization)
  Sender: FDA-Public Use
  Company Number: US-GLAXOSMITHKLINE-A0971179A

PATIENT
  Age: 59 Year
  Sex: Female

DRUGS (4)
  1. TRACLEER [Concomitant]
     Dosage: 125MG TWICE PER DAY
  2. LASIX [Concomitant]
     Dosage: 20MGD PER DAY
  3. FLOLAN [Suspect]
     Indication: SARCOIDOSIS
     Dosage: 59NGKM UNKNOWN
     Route: 042
     Dates: start: 20060309
  4. SPIRONOLACTONE [Concomitant]
     Dosage: 25MGD PER DAY

REACTIONS (4)
  - HEART RATE INCREASED [None]
  - CHEST DISCOMFORT [None]
  - DYSPNOEA [None]
  - CARDIAC FAILURE CONGESTIVE [None]
